FAERS Safety Report 17962247 (Version 1)
Quarter: 2020Q2

REPORT INFORMATION
  Report Type: Report from Study
  Country: US (occurrence: US)
  Receive Date: 20200630
  Receipt Date: 20200630
  Transmission Date: 20200714
  Serious: No
  Sender: FDA-Public Use
  Company Number: US-BIOVITRUM-2019US3844

PATIENT
  Age: 25 Year
  Sex: Female

DRUGS (1)
  1. KINERET [Suspect]
     Active Substance: ANAKINRA
     Indication: POLYARTHRITIS
     Route: 058
     Dates: start: 20191008

REACTIONS (6)
  - Injection site pruritus [Unknown]
  - Off label use [Unknown]
  - Diarrhoea [Unknown]
  - Malaise [Unknown]
  - Abnormal dreams [Unknown]
  - Infection [Unknown]

NARRATIVE: CASE EVENT DATE: 20191008
